FAERS Safety Report 23389013 (Version 2)
Quarter: 2024Q1

REPORT INFORMATION
  Report Type: Spontaneous
  Country: US (occurrence: US)
  Receive Date: 20240110
  Receipt Date: 20240202
  Transmission Date: 20240410
  Serious: Yes (Hospitalization, Other)
  Sender: FDA-Public Use
  Company Number: US-PFIZER INC-202400001191

PATIENT
  Age: 58 Year
  Sex: Female
  Weight: 68.04 kg

DRUGS (1)
  1. ESTRING [Suspect]
     Active Substance: ESTRADIOL
     Indication: Vulvovaginal dryness
     Dosage: ONCE EVERY 3 MONTHS
     Route: 067
     Dates: start: 20231222

REACTIONS (6)
  - Libido decreased [Not Recovered/Not Resolved]
  - Oophorectomy [Not Recovered/Not Resolved]
  - Hysterectomy [Not Recovered/Not Resolved]
  - Hormone receptor positive breast cancer [Unknown]
  - Blood glucose increased [Not Recovered/Not Resolved]
  - Blood oestrogen decreased [Unknown]

NARRATIVE: CASE EVENT DATE: 20231222
